FAERS Safety Report 7790288-1 (Version None)
Quarter: 2011Q3

REPORT INFORMATION
  Report Type: 
  Country: None (occurrence: None)
  Receive Date: 20110930
  Receipt Date: 20110927
  Transmission Date: 20111222
  Serious: Yes (Hospitalization)
  Sender: FDA-Public Use
  Company Number: FR-PFIZER INC-2011229252

PATIENT
  Age: 62 Year
  Sex: Male
  Weight: 78 kg

DRUGS (6)
  1. DEXAMETHASONE [Concomitant]
     Dosage: UNK
  2. VELCADE [Suspect]
     Dosage: 1 MG/M2, AT D1, D4, D8 AND D11
     Route: 042
     Dates: start: 20110101
  3. VELCADE [Suspect]
     Indication: MULTIPLE MYELOMA
     Dosage: 1.3 MG/M2, AT D1, D4, D8 AND D11
     Route: 042
     Dates: start: 20110412, end: 20110612
  4. REVLIMID [Suspect]
     Indication: MULTIPLE MYELOMA
     Dosage: 25 MG, 1X/DAY (14-DAY CYCLE)
     Route: 048
     Dates: start: 20110412, end: 20110612
  5. DOXAZOSIN MESYLATE [Suspect]
     Indication: PROSTATIC ADENOMA
     Dosage: 1 DF, 1X/DAY
     Route: 048
     Dates: start: 20000101, end: 20110616
  6. REVLIMID [Suspect]
     Dosage: 10 MG, 1X/DAY/24 HOURS (14-DAY CYCLE)
     Route: 048
     Dates: start: 20110101, end: 20110101

REACTIONS (2)
  - ORTHOSTATIC HYPOTENSION [None]
  - FALL [None]
